FAERS Safety Report 14977909 (Version 1)
Quarter: 2018Q2

REPORT INFORMATION
  Report Type: Spontaneous
  Country: US (occurrence: US)
  Receive Date: 20180515
  Receipt Date: 20180515
  Transmission Date: 20180711
  Serious: Yes (Other)
  Sender: FDA-Public Use
  Company Number: None

PATIENT
  Age: 61 Year
  Sex: Female
  Weight: 75.15 kg

DRUGS (14)
  1. AMITRIPTYLINE [Suspect]
     Active Substance: AMITRIPTYLINE
     Indication: DRUG THERAPY
     Dosage: ?          QUANTITY:30 TABLET(S);?
     Route: 048
     Dates: start: 20161115, end: 20180414
  2. PRAVASTATIN. [Concomitant]
     Active Substance: PRAVASTATIN
  3. ISOSORBIDE. [Concomitant]
     Active Substance: ISOSORBIDE
  4. OXYCODONE [Concomitant]
     Active Substance: OXYCODONE
  5. CENTRUM SILVER FOR WOMEN [Concomitant]
     Active Substance: MINERALS\VITAMINS
  6. METHYL PROTECT [Concomitant]
  7. VITAMIN D3 [Concomitant]
     Active Substance: CHOLECALCIFEROL
  8. MAGNESIUM [Concomitant]
     Active Substance: MAGNESIUM
  9. LOW DOSE ASPIRIN [Concomitant]
     Active Substance: ASPIRIN
  10. OSCAL [Concomitant]
     Active Substance: CALCIUM CARBONATE
  11. CYMBALTA [Suspect]
     Active Substance: DULOXETINE HYDROCHLORIDE
     Indication: NERVE INJURY
     Dosage: ?          QUANTITY:30 CAPSULE(S);?
     Route: 048
     Dates: start: 20151115
  12. TRSSOFONE [Concomitant]
  13. METOPROLOL. [Concomitant]
     Active Substance: METOPROLOL
  14. XANAX [Concomitant]
     Active Substance: ALPRAZOLAM

REACTIONS (2)
  - Chest pain [None]
  - Contraindication to medical treatment [None]

NARRATIVE: CASE EVENT DATE: 20180508
